FAERS Safety Report 25473156 (Version 1)
Quarter: 2025Q2

REPORT INFORMATION
  Report Type: Spontaneous
  Country: GB (occurrence: GB)
  Receive Date: 20250624
  Receipt Date: 20250624
  Transmission Date: 20250717
  Serious: Yes (Other)
  Sender: AUROBINDO
  Company Number: GB-AUROBINDO-AUR-APL-2025-030792

PATIENT
  Age: 34 Year
  Sex: Female

DRUGS (5)
  1. BUPIVACAINE HYDROCHLORIDE [Suspect]
     Active Substance: BUPIVACAINE HYDROCHLORIDE
     Indication: Anaesthesia
     Route: 065
  2. CODEINE PHOSPHATE [Suspect]
     Active Substance: CODEINE PHOSPHATE
     Indication: Flank pain
     Route: 048
  3. MORPHINE [Suspect]
     Active Substance: MORPHINE
     Indication: Flank pain
     Route: 048
  4. MEPERIDINE [Suspect]
     Active Substance: MEPERIDINE
     Indication: Flank pain
     Route: 030
  5. ACETAMINOPHEN [Suspect]
     Active Substance: ACETAMINOPHEN
     Indication: Flank pain
     Route: 042

REACTIONS (2)
  - Drug ineffective [Unknown]
  - Exposure during pregnancy [Unknown]
